FAERS Safety Report 7284638-2 (Version None)
Quarter: 2011Q1

REPORT INFORMATION
  Report Type: 
  Country: None (occurrence: None)
  Receive Date: 20110210
  Receipt Date: 20110121
  Transmission Date: 20110831
  Serious: No
  Sender: FDA-Public Use
  Company Number: US-BIOGENIDEC-2011BI003835

PATIENT
  Sex: Female
  Weight: 72 kg

DRUGS (9)
  1. ADVAIR [Concomitant]
     Route: 055
  2. VALIUM [Concomitant]
     Route: 048
  3. CLARINEX [Concomitant]
     Route: 048
  4. LIDODERM [Concomitant]
  5. ALBUTEROL SULFATE [Concomitant]
     Route: 055
  6. KLONOPIN [Concomitant]
     Route: 048
  7. TYSABRI [Suspect]
     Indication: MULTIPLE SCLEROSIS
     Route: 042
     Dates: start: 20090301
  8. PROZAC [Concomitant]
     Route: 048
  9. ZANAFLEX [Concomitant]
     Indication: MUSCLE SPASTICITY

REACTIONS (1)
  - GRAVITATIONAL OEDEMA [None]
